FAERS Safety Report 14155435 (Version 13)
Quarter: 2018Q4

REPORT INFORMATION
  Report Type: Report from Study
  Country: TR (occurrence: TR)
  Receive Date: 20171103
  Receipt Date: 20181228
  Transmission Date: 20190204
  Serious: Yes (Hospitalization)
  Sender: FDA-Public Use
  Company Number: TR-ROCHE-2014962

PATIENT
  Age: 64 Year
  Sex: Male
  Weight: 91.8 kg

DRUGS (24)
  1. DOLADAMON [Concomitant]
     Indication: PAIN
     Route: 065
     Dates: start: 20170505, end: 20171005
  2. DIGOXIN. [Concomitant]
     Active Substance: DIGOXIN
     Route: 065
     Dates: start: 20171025, end: 20171025
  3. XATRAL XL [Concomitant]
     Active Substance: ALFUZOSIN HYDROCHLORIDE
     Indication: BENIGN PROSTATIC HYPERPLASIA
     Route: 065
     Dates: start: 2014
  4. LUSTRAL [Concomitant]
     Active Substance: SERTRALINE HYDROCHLORIDE
     Indication: ANXIETY
     Route: 065
     Dates: start: 20170511
  5. DOLADAMON [Concomitant]
     Route: 065
     Dates: start: 20171006
  6. BELOC (TURKEY) [Concomitant]
     Route: 065
     Dates: start: 20171023, end: 20171023
  7. CIPRO [Concomitant]
     Active Substance: CIPROFLOXACIN HYDROCHLORIDE
     Indication: PYREXIA
     Route: 065
     Dates: start: 20171025, end: 20171027
  8. PAROL [Concomitant]
     Active Substance: ACETAMINOPHEN
     Indication: PYREXIA
     Dosage: 10 MG/ML
     Route: 065
     Dates: start: 20171025, end: 20171025
  9. FLAGYL [Concomitant]
     Active Substance: METRONIDAZOLE\METRONIDAZOLE HYDROCHLORIDE
     Indication: PYREXIA
     Route: 065
     Dates: start: 20171025, end: 20171027
  10. PAROL [Concomitant]
     Active Substance: ACETAMINOPHEN
     Dosage: 10 MG/ML
     Route: 065
     Dates: start: 20171027, end: 20171105
  11. CLEXANE [Concomitant]
     Active Substance: ENOXAPARIN SODIUM
     Dosage: 80 MG / 0.8 ML
     Route: 065
     Dates: start: 20171027
  12. TAZOCIN [Concomitant]
     Active Substance: PIPERACILLIN SODIUM\TAZOBACTAM SODIUM
     Indication: PYREXIA
     Route: 065
     Dates: start: 20171029, end: 20171102
  13. KYTRIL [Concomitant]
     Active Substance: GRANISETRON HYDROCHLORIDE
     Indication: PROPHYLAXIS
     Route: 065
     Dates: start: 20171104, end: 20171109
  14. CATAFLAM [Concomitant]
     Active Substance: DICLOFENAC POTASSIUM
     Indication: PAIN
     Route: 065
     Dates: start: 20170616
  15. CONTRAMAL [Concomitant]
     Active Substance: TRAMADOL HYDROCHLORIDE
     Indication: PAIN
     Route: 065
     Dates: start: 20171006, end: 20171008
  16. ATEZOLIZUMAB. [Suspect]
     Active Substance: ATEZOLIZUMAB
     Indication: NON-SMALL CELL LUNG CANCER STAGE IV
     Dosage: DATE OF MOST RECENT DOSE OF ATEZOLIZUMAB PRIOR TO ADVERSE EVENTS ONSET ON 05/OCT/2017 AT 12.00
     Route: 042
     Dates: start: 20170531
  17. ZESTAT (TURKEY) [Concomitant]
     Indication: ANXIETY
     Route: 065
     Dates: start: 20170511
  18. PAROL [Concomitant]
     Active Substance: ACETAMINOPHEN
     Indication: PAIN
     Route: 065
     Dates: start: 20170425
  19. ALLERSET [Concomitant]
     Active Substance: CETIRIZINE HYDROCHLORIDE
     Indication: OEDEMA PERIPHERAL
     Route: 065
     Dates: start: 20170729
  20. BELOC (TURKEY) [Concomitant]
     Route: 065
     Dates: start: 20171027
  21. ULCURAN [Concomitant]
     Active Substance: RANITIDINE HYDROCHLORIDE
     Indication: PROPHYLAXIS
     Route: 065
     Dates: start: 20171029, end: 20171109
  22. BELOC (TURKEY) [Concomitant]
     Route: 065
     Dates: start: 20171024, end: 20171027
  23. MERONEM [Concomitant]
     Active Substance: MEROPENEM
     Indication: PYREXIA
     Route: 042
     Dates: start: 20171102, end: 20171110
  24. DEXTROSE. [Concomitant]
     Active Substance: DEXTROSE
     Indication: PROPHYLAXIS
     Route: 065
     Dates: start: 20171103, end: 20171109

REACTIONS (3)
  - Fatigue [Recovering/Resolving]
  - Autoimmune colitis [Recovered/Resolved]
  - Autoimmune myocarditis [Recovering/Resolving]

NARRATIVE: CASE EVENT DATE: 20171016
